FAERS Safety Report 15899173 (Version 1)
Quarter: 2019Q1

REPORT INFORMATION
  Report Type: Spontaneous
  Country: US (occurrence: US)
  Receive Date: 20190110
  Receipt Date: 20190110
  Transmission Date: 20190417
  Serious: Yes (Hospitalization)
  Sender: FDA-Public Use
  Company Number: None

PATIENT
  Sex: Female

DRUGS (3)
  1. PULMOZYME [Suspect]
     Active Substance: DORNASE ALFA
     Indication: CYSTIC FIBROSIS
     Dosage: ?          OTHER DOSE:2.5ML;OTHER ROUTE:ORAL VIA NEBULIZER?
     Route: 048
     Dates: start: 20181010
  2. SODIUM CHLORIDE VIAL [Suspect]
     Active Substance: SODIUM CHLORIDE
     Indication: CYSTIC FIBROSIS
     Dosage: ?          OTHER FREQUENCY:BID - TID;OTHER ROUTE:INHALATION?
     Route: 055
     Dates: start: 20141017
  3. XOLAIR [Concomitant]
     Active Substance: OMALIZUMAB

REACTIONS (1)
  - Hospitalisation [None]
